FAERS Safety Report 10457833 (Version 2)
Quarter: 2015Q1

REPORT INFORMATION
  Report Type: Spontaneous
  Country: US (occurrence: US)
  Receive Date: 20140916
  Receipt Date: 20150302
  Transmission Date: 20150720
  Serious: Yes (Other)
  Sender: FDA-Public Use
  Company Number: US-GLAXOSMITHKLINE-A1089130A

PATIENT
  Sex: Female

DRUGS (1)
  1. ANORO ELLIPTA [Suspect]
     Active Substance: UMECLIDINIUM BROMIDE\VILANTEROL TRIFENATATE
     Indication: DYSPNOEA
     Dosage: 62.5 / 25 MCG. UNKNOWN DOSING.
     Route: 065
     Dates: start: 2014

REACTIONS (5)
  - Macular degeneration [Unknown]
  - Eye operation [Unknown]
  - Drug dose omission [Unknown]
  - Hypersensitivity [Unknown]
  - Hearing aid user [Unknown]
